FAERS Safety Report 11623821 (Version 1)
Quarter: 2015Q4

REPORT INFORMATION
  Report Type: Spontaneous
  Country: US (occurrence: US)
  Receive Date: 20151013
  Receipt Date: 20151013
  Transmission Date: 20160304
  Serious: No
  Sender: FDA-Public Use
  Company Number: US-JNJFOC-20140915977

PATIENT
  Age: 64 Year
  Sex: Female
  Weight: 72.58 kg

DRUGS (4)
  1. TRAMADOL. [Concomitant]
     Active Substance: TRAMADOL
     Indication: PRODUCT USED FOR UNKNOWN INDICATION
     Route: 065
  2. VICODIN [Concomitant]
     Active Substance: ACETAMINOPHEN\HYDROCODONE BITARTRATE
     Indication: PAIN
     Route: 065
  3. TYLENOL ANALGESIC UNKNOWN [Suspect]
     Active Substance: ACETAMINOPHEN
     Route: 048
  4. TYLENOL ANALGESIC UNKNOWN [Suspect]
     Active Substance: ACETAMINOPHEN
     Indication: PAIN
     Dosage: 1-2 PILLS
     Route: 048

REACTIONS (2)
  - Choking sensation [Recovered/Resolved]
  - Product shape issue [Unknown]
